FAERS Safety Report 6657458-7 (Version None)
Quarter: 2010Q1

REPORT INFORMATION
  Report Type: 
  Country: None (occurrence: None)
  Receive Date: 20100330
  Receipt Date: 20100319
  Transmission Date: 20100710
  Serious: Yes (Hospitalization)
  Sender: FDA-Public Use
  Company Number: PHHY2010FR14741

PATIENT
  Age: 28 Year
  Sex: Male

DRUGS (2)
  1. TEGRETOL [Suspect]
     Dosage: UNK
     Route: 048
     Dates: start: 20100211, end: 20100212
  2. TERCIAN [Suspect]
     Dosage: UNK
     Dates: start: 20100208, end: 20100212

REACTIONS (17)
  - BLOOD PRESSURE DECREASED [None]
  - C-REACTIVE PROTEIN INCREASED [None]
  - DERMATITIS EXFOLIATIVE [None]
  - DERMO-HYPODERMITIS [None]
  - EOSINOPHIL COUNT INCREASED [None]
  - HEART RATE INCREASED [None]
  - HEPATITIS A POSITIVE [None]
  - HEPATITIS B POSITIVE [None]
  - HEPATITIS C POSITIVE [None]
  - LYMPHADENOPATHY [None]
  - NAUSEA [None]
  - PRURITUS [None]
  - PYREXIA [None]
  - RASH MACULO-PAPULAR [None]
  - SKIN EXFOLIATION [None]
  - TOXIC SKIN ERUPTION [None]
  - VOMITING [None]
